FAERS Safety Report 7713666-5 (Version None)
Quarter: 2011Q3

REPORT INFORMATION
  Report Type: 
  Country: None (occurrence: None)
  Receive Date: 20110826
  Receipt Date: 20110825
  Transmission Date: 20111222
  Serious: Yes (Hospitalization)
  Sender: FDA-Public Use
  Company Number: JP-ABBOTT-11P-087-0849295-00

PATIENT
  Sex: Male

DRUGS (3)
  1. HUMIRA [Suspect]
  2. HUMIRA [Suspect]
     Indication: CROHN'S DISEASE
     Route: 058
     Dates: start: 20101203, end: 20101203
  3. HUMIRA [Suspect]

REACTIONS (3)
  - ANASTOMOTIC STENOSIS [None]
  - DEHYDRATION [None]
  - ILEUS [None]
